FAERS Safety Report 8548708-0 (Version None)
Quarter: 2012Q3

REPORT INFORMATION
  Report Type: 
  Country: None (occurrence: None)
  Receive Date: 20120730
  Receipt Date: 20120723
  Transmission Date: 20120928
  Serious: Yes (Hospitalization)
  Sender: FDA-Public Use
  Company Number: PHHY2010JP59427

PATIENT
  Sex: Female

DRUGS (21)
  1. RISPERDAL [Concomitant]
     Dosage: 1 MG, UNK
     Route: 048
  2. AKINETON [Concomitant]
     Indication: SCHIZOPHRENIA
     Dosage: 4 MG, UNK
     Route: 048
     Dates: start: 20100825
  3. CLOZARIL [Suspect]
     Dosage: 50 MG, UNK
     Route: 048
     Dates: start: 20100829, end: 20100831
  4. DEPAKENE [Concomitant]
     Dosage: 400 MG, UNK
     Route: 048
     Dates: end: 20100909
  5. HALOPERIDOL [Concomitant]
     Dosage: UNK UKN, UNK
  6. CLOZARIL [Suspect]
     Dosage: 125 MG, UNK
     Route: 048
     Dates: start: 20100905, end: 20100905
  7. CLOZARIL [Suspect]
     Dosage: 50 MG, UNK
     Route: 048
     Dates: start: 20100906, end: 20100906
  8. DEPAKENE [Concomitant]
     Indication: SCHIZOPHRENIA
     Dosage: 800 MG, DAILY
     Route: 048
     Dates: start: 20100701
  9. AKINETON [Concomitant]
     Dosage: 2 MG, UNK
     Route: 048
     Dates: end: 20100910
  10. SENNOSIDE [Concomitant]
     Indication: SCHIZOPHRENIA
     Dosage: 24 MG, UNK
     Route: 048
     Dates: start: 20100825, end: 20100905
  11. CLOZARIL [Suspect]
     Dosage: 75 MG, UNK
     Route: 048
     Dates: start: 20100901, end: 20100902
  12. CLOZARIL [Suspect]
     Dosage: 25 MG, UNK
     Route: 048
     Dates: start: 20100909, end: 20100909
  13. SELBEX [Concomitant]
     Dosage: 150 MG, UNK
     Route: 048
     Dates: start: 20100906, end: 20100909
  14. SOFMIN AMEL [Concomitant]
     Dosage: UNK UKN, UNK
     Route: 048
  15. CLOZARIL [Suspect]
     Dosage: 25 MG, UNK
     Route: 048
     Dates: start: 20100826, end: 20100828
  16. CLOZARIL [Suspect]
     Dosage: 100 MG, UNK
     Route: 048
     Dates: start: 20100903, end: 20100904
  17. CLOZARIL [Suspect]
     Dosage: 75 MG, UNK
     Route: 048
     Dates: start: 20100908, end: 20100908
  18. DEPAKENE [Concomitant]
     Dosage: 600 MG, UNK
     Route: 048
     Dates: start: 20100903
  19. RISPERDAL [Concomitant]
     Dosage: 2 MG, UNK
     Route: 048
     Dates: start: 20100831
  20. CLOZARIL [Suspect]
     Indication: SCHIZOPHRENIA
     Dosage: 12.5 MG, UNK
     Route: 048
     Dates: start: 20100825, end: 20100825
  21. ROCEPHIN [Concomitant]
     Dosage: 2 G, UNK
     Route: 042
     Dates: start: 20100906, end: 20100908

REACTIONS (14)
  - INFECTION [None]
  - WHITE BLOOD CELL COUNT DECREASED [None]
  - DRUG ERUPTION [None]
  - PYREXIA [None]
  - ANAEMIA [None]
  - ERYTHEMA [None]
  - LIVER DISORDER [None]
  - COUGH [None]
  - CHILLS [None]
  - LYMPHOCYTE PERCENTAGE DECREASED [None]
  - PLATELET COUNT DECREASED [None]
  - PNEUMONIA [None]
  - HEADACHE [None]
  - HEART RATE INCREASED [None]
